FAERS Safety Report 15269736 (Version 2)
Quarter: 2020Q3

REPORT INFORMATION
  Report Type: Report from Study
  Country: CN (occurrence: CN)
  Receive Date: 20180813
  Receipt Date: 20180817
  Transmission Date: 20201105
  Serious: Yes (Life-Threatening, Hospitalization)
  Sender: FDA-Public Use
  Company Number: CN-ASTRAZENECA-2018SF02391

PATIENT
  Age: 22768 Day
  Sex: Male

DRUGS (9)
  1. ETOPOSIDE. [Suspect]
     Active Substance: ETOPOSIDE
     Indication: SMALL CELL LUNG CANCER
     Dosage: 169 MG/M2
     Route: 065
     Dates: start: 20180724, end: 20180724
  2. CISPLATIN. [Suspect]
     Active Substance: CISPLATIN
     Indication: SMALL CELL LUNG CANCER
     Dosage: 66.80 MG/M2
     Route: 065
     Dates: start: 20180724, end: 20180724
  3. CISPLATIN. [Suspect]
     Active Substance: CISPLATIN
     Indication: SMALL CELL LUNG CANCER
     Dosage: 60 MG/M2
     Route: 065
     Dates: start: 20180725, end: 20180725
  4. MEDI4736 [Suspect]
     Active Substance: DURVALUMAB
     Indication: SMALL CELL LUNG CANCER
     Route: 042
     Dates: start: 20180724
  5. TREMELIMUMAB. [Suspect]
     Active Substance: TREMELIMUMAB
     Indication: SMALL CELL LUNG CANCER
     Route: 042
     Dates: start: 20180724
  6. FENBID [Concomitant]
     Active Substance: IBUPROFEN
     Indication: COUGH
     Route: 048
     Dates: start: 20180806, end: 20180807
  7. ETOPOSIDE. [Suspect]
     Active Substance: ETOPOSIDE
     Indication: SMALL CELL LUNG CANCER
     Dosage: 169 MG/M2
     Route: 065
     Dates: start: 20180725, end: 20180725
  8. ETOPOSIDE. [Suspect]
     Active Substance: ETOPOSIDE
     Indication: SMALL CELL LUNG CANCER
     Dosage: 169 MG/M2
     Route: 065
     Dates: start: 20180726, end: 20180726
  9. LIQUORICE [Concomitant]
     Active Substance: LICORICE
     Indication: COUGH
     Route: 048
     Dates: start: 20180805, end: 20180806

REACTIONS (1)
  - Febrile neutropenia [Recovering/Resolving]

NARRATIVE: CASE EVENT DATE: 20180808
